FAERS Safety Report 7157654-9 (Version None)
Quarter: 2010Q4

REPORT INFORMATION
  Report Type: 
  Country: None (occurrence: None)
  Receive Date: 20101214
  Receipt Date: 20100310
  Transmission Date: 20110411
  Serious: No
  Sender: FDA-Public Use
  Company Number: US-ASTRAZENECA-2010SE10432

PATIENT
  Age: 63 Year
  Sex: Female
  Weight: 66.7 kg

DRUGS (3)
  1. CRESTOR [Suspect]
     Route: 048
     Dates: start: 20100223, end: 20100228
  2. CRESTOR [Suspect]
     Route: 048
     Dates: start: 20100301
  3. DIAZIDE [Concomitant]

REACTIONS (4)
  - ASTHENIA [None]
  - DIZZINESS [None]
  - HEADACHE [None]
  - VISION BLURRED [None]
